FAERS Safety Report 4950819-3 (Version None)
Quarter: 2006Q1

REPORT INFORMATION
  Report Type: 
  Country: None (occurrence: None)
  Receive Date: 20060322
  Receipt Date: 20060316
  Transmission Date: 20060701
  Serious: Yes (Other)
  Sender: FDA-Public Use
  Company Number: 2006UW04564

PATIENT
  Sex: Female

DRUGS (1)
  1. SEROQUEL [Suspect]
     Route: 048
     Dates: start: 20030820

REACTIONS (3)
  - BLOOD GLUCOSE ABNORMAL [None]
  - DIABETIC NEUROPATHY [None]
  - HYPOAESTHESIA [None]
